FAERS Safety Report 9264092 (Version 2)
Quarter: 2013Q4

REPORT INFORMATION
  Report Type: Spontaneous
  Country: GB (occurrence: GB)
  Receive Date: 20130430
  Receipt Date: 20131015
  Transmission Date: 20140711
  Serious: Yes (Death, Life-Threatening, Hospitalization, Disabling, Other)
  Sender: FDA-Public Use
  Company Number: GB-B.I. PHARMACEUTICALS,INC./RIDGEFIELD-2013-UK-00960UK

PATIENT
  Age: 78 Year
  Sex: Male
  Weight: 85.8 kg

DRUGS (7)
  1. PRADAXA [Suspect]
     Indication: ATRIAL FIBRILLATION
     Dosage: 220 MG
     Route: 048
     Dates: start: 20120517, end: 20121210
  2. AMLODIPINE [Concomitant]
     Dosage: 10 MG
     Route: 048
     Dates: start: 19990104
  3. ATENOLOL [Concomitant]
     Dosage: 25 MG
     Route: 048
     Dates: start: 19991215
  4. CARBOCISTEINE [Concomitant]
     Dosage: 2250 MG
     Route: 048
     Dates: start: 201108
  5. PARACETAMOL [Concomitant]
     Route: 048
     Dates: start: 201205
  6. ZOPICLONE [Concomitant]
     Route: 048
     Dates: start: 201207
  7. ATORVASTATIN [Concomitant]
     Dosage: 10 MG

REACTIONS (7)
  - Vascular occlusion [Fatal]
  - Cerebrovascular accident [Not Recovered/Not Resolved]
  - Haemorrhage intracranial [Not Recovered/Not Resolved]
  - Haematoma [Unknown]
  - Hemiparesis [Unknown]
  - Dysarthria [Unknown]
  - Grip strength decreased [Unknown]
